FAERS Safety Report 9167930 (Version 2)
Quarter: 2013Q2

REPORT INFORMATION
  Report Type: Spontaneous
  Country: BR (occurrence: None)
  Receive Date: 20130307
  Receipt Date: 20130412
  Transmission Date: 20140414
  Serious: Yes (Other)
  Sender: FDA-Public Use
  Company Number: ENTC2013-0082

PATIENT
  Sex: Male

DRUGS (2)
  1. STALVEO (LEVODOPA, CARBIDOPA, ENTACAPONE) [Suspect]
     Indication: PARKINSON^S DISEASE
     Dosage: 1 TABLET DAILY; STRENGTH: 100/25/200
     Route: 048
  2. PRAMIPEXOLE [Concomitant]

REACTIONS (7)
  - Gait disturbance [None]
  - Freezing phenomenon [None]
  - Somnolence [None]
  - Mobility decreased [None]
  - Parkinson^s disease [None]
  - Disease progression [None]
  - Fall [None]
